FAERS Safety Report 6831530-0 (Version None)
Quarter: 2010Q3

REPORT INFORMATION
  Report Type: 
  Country: None (occurrence: None)
  Receive Date: 20100712
  Receipt Date: 20100622
  Transmission Date: 20110219
  Serious: Yes (Other)
  Sender: FDA-Public Use
  Company Number: FR-JNJFOC-20100701363

PATIENT
  Sex: Female

DRUGS (2)
  1. IXPRIM [Suspect]
     Indication: PAIN
     Route: 065
  2. IXPRIM [Suspect]
     Route: 065

REACTIONS (3)
  - INFLUENZA [None]
  - PARAESTHESIA [None]
  - WITHDRAWAL SYNDROME [None]
